FAERS Safety Report 20853745 (Version 1)
Quarter: 2022Q2

REPORT INFORMATION
  Report Type: Spontaneous
  Country: GB (occurrence: GB)
  Receive Date: 20220520
  Receipt Date: 20220520
  Transmission Date: 20220721
  Serious: Yes (Other)
  Sender: FDA-Public Use
  Company Number: GB-drreddys-LIT/UKI/22/0150160

PATIENT
  Age: 77 Year
  Sex: Male

DRUGS (6)
  1. BORTEZOMIB [Suspect]
     Active Substance: BORTEZOMIB
     Indication: Plasmacytoma
     Dosage: SINGLE CYCLE OF BORTEZOMIB
  2. BORTEZOMIB [Suspect]
     Active Substance: BORTEZOMIB
     Dosage: HE CONTINUED VCD REGIMEN FOR FURTHER 2 CYCLES
  3. THALIDOMIDE [Suspect]
     Active Substance: THALIDOMIDE
     Indication: Plasmacytoma
  4. DEXAMETHASONE [Suspect]
     Active Substance: DEXAMETHASONE
     Indication: Plasmacytoma
  5. CYCLOPHOSPHAMIDE [Suspect]
     Active Substance: CYCLOPHOSPHAMIDE
     Indication: Plasmacytoma
  6. EPINEPHRINE [Concomitant]
     Active Substance: EPINEPHRINE
     Indication: Plasmacytoma

REACTIONS (2)
  - Disease progression [Unknown]
  - Drug ineffective [Unknown]
